FAERS Safety Report 11051559 (Version 1)
Quarter: 2015Q2

REPORT INFORMATION
  Report Type: Spontaneous
  Country: FR (occurrence: FR)
  Receive Date: 20150421
  Receipt Date: 20150421
  Transmission Date: 20150821
  Serious: Yes (Hospitalization)
  Sender: FDA-Public Use
  Company Number: FR-SA-2015SA049222

PATIENT
  Age: 77 Year
  Sex: Male

DRUGS (15)
  1. LANTUS [Concomitant]
     Active Substance: INSULIN GLARGINE
  2. LIPANTHYL [Suspect]
     Active Substance: FENOFIBRATE
     Indication: DYSLIPIDAEMIA
     Route: 048
     Dates: end: 20150212
  3. KARDEGIC [Concomitant]
     Active Substance: ASPIRIN LYSINE
     Dosage: POWDER FOR ORAL SOLUTION IN SACHET- DOSE
  4. LEGALON [Concomitant]
     Active Substance: MILK THISTLE
  5. GLUCOPHAGE [Concomitant]
     Active Substance: METFORMIN HYDROCHLORIDE
  6. ALDACTONE [Suspect]
     Active Substance: SPIRONOLACTONE
     Indication: HYPERTENSION
     Route: 048
     Dates: end: 20150212
  7. LOPRIL [Suspect]
     Active Substance: LISINOPRIL
     Indication: HYPERTENSION
     Dosage: (50 MG, 2 DAY (S))
     Route: 048
     Dates: end: 20150212
  8. PARIET [Concomitant]
     Active Substance: RABEPRAZOLE SODIUM
  9. STILNOX [Concomitant]
     Active Substance: ZOLPIDEM TARTRATE
     Dosage: FILM-COATED TABLETS DIVISIBLE
  10. LASILIX [Suspect]
     Active Substance: FUROSEMIDE
     Indication: HYPERTENSION
     Dosage: 40 MG, 2 DAY (S)
     Route: 048
     Dates: end: 20150212
  11. TERCIAN [Concomitant]
     Active Substance: CYAMEMAZINE
     Dosage: FILM-COATED TABLETS DIVISIBLE
  12. DAFALGAN [Concomitant]
     Active Substance: ACETAMINOPHEN
  13. PROFENID [Suspect]
     Active Substance: KETOPROFEN
     Indication: SCIATICA
     Route: 048
     Dates: start: 201501, end: 20150212
  14. JOSIR [Concomitant]
     Active Substance: TAMSULOSIN
     Dosage: PROLONGED-RELEASE MICROGRANULES CAPSULE
  15. IXPRIM [Concomitant]
     Active Substance: ACETAMINOPHEN\TRAMADOL HYDROCHLORIDE

REACTIONS (3)
  - Condition aggravated [Recovering/Resolving]
  - Renal failure [Recovering/Resolving]
  - Renal tubular necrosis [Recovering/Resolving]

NARRATIVE: CASE EVENT DATE: 201502
